FAERS Safety Report 6427688-8 (Version None)
Quarter: 2009Q4

REPORT INFORMATION
  Report Type: 
  Country: None (occurrence: None)
  Receive Date: 20091105
  Receipt Date: 20091028
  Transmission Date: 20100525
  Serious: Yes (Other)
  Sender: FDA-Public Use
  Company Number: US-BIOGENIDEC-2009BI026774

PATIENT
  Age: 60 Year
  Sex: Male

DRUGS (2)
  1. TYSABRI [Suspect]
     Indication: MULTIPLE SCLEROSIS
     Route: 042
     Dates: start: 20090122
  2. TYSABRI [Suspect]
     Dates: start: 20070626, end: 20080213

REACTIONS (4)
  - DRUG EFFECT DECREASED [None]
  - HIP ARTHROPLASTY [None]
  - HYPOAESTHESIA [None]
  - INFLUENZA [None]
